FAERS Safety Report 8118381-4 (Version None)
Quarter: 2012Q1

REPORT INFORMATION
  Report Type: 
  Country: None (occurrence: None)
  Receive Date: 20120207
  Receipt Date: 20120206
  Transmission Date: 20120608
  Serious: Yes (Hospitalization, Other)
  Sender: FDA-Public Use
  Company Number: US-PFIZER INC-2012032320

PATIENT
  Sex: Female
  Weight: 93.878 kg

DRUGS (1)
  1. TIKOSYN [Suspect]
     Indication: HEART RATE IRREGULAR
     Dosage: 125 UG, 2X/DAY
     Dates: start: 20111120, end: 20120101

REACTIONS (9)
  - PHARYNGEAL OEDEMA [None]
  - GOITRE [None]
  - VOMITING [None]
  - MALAISE [None]
  - EYE SWELLING [None]
  - THYROID PAIN [None]
  - EYE PAIN [None]
  - RENAL FAILURE [None]
  - PAIN [None]
